FAERS Safety Report 19221470 (Version 1)
Quarter: 2021Q2

REPORT INFORMATION
  Report Type: Spontaneous
  Country: MX (occurrence: MX)
  Receive Date: 20210506
  Receipt Date: 20210506
  Transmission Date: 20210717
  Serious: Yes (Other)
  Sender: FDA-Public Use
  Company Number: MX-JNJFOC-20210460602

PATIENT
  Sex: Male
  Weight: 100 kg

DRUGS (2)
  1. XARELTO [Suspect]
     Active Substance: RIVAROXABAN
     Indication: PRODUCT USED FOR UNKNOWN INDICATION
     Dosage: 10 MG, QD
     Route: 048
     Dates: start: 20210125
  2. XARELTO [Suspect]
     Active Substance: RIVAROXABAN
     Dosage: 10 MG, QD
     Route: 048
     Dates: start: 2021

REACTIONS (2)
  - Embolism [Unknown]
  - Off label use [Unknown]

NARRATIVE: CASE EVENT DATE: 2021
